FAERS Safety Report 12173328 (Version 1)
Quarter: 2016Q1

REPORT INFORMATION
  Report Type: Spontaneous
  Country: FR (occurrence: FR)
  Receive Date: 20160311
  Receipt Date: 20160311
  Transmission Date: 20160526
  Serious: Yes (Death, Other)
  Sender: FDA-Public Use
  Company Number: FR-GILEAD-2015-0156531

PATIENT
  Sex: Male

DRUGS (3)
  1. CHLORAMINOPHENE [Concomitant]
     Active Substance: CHLORAMBUCIL
     Dosage: UNK
     Dates: start: 201512
  2. ZYDELIG [Suspect]
     Active Substance: IDELALISIB
     Indication: PRODUCT USED FOR UNKNOWN INDICATION
     Dosage: UNK
     Route: 065
     Dates: start: 201505, end: 201509
  3. RITUXIMAB [Concomitant]
     Active Substance: RITUXIMAB
     Dosage: UNK
     Dates: start: 201505, end: 201509

REACTIONS (2)
  - Death [Fatal]
  - Lymphocytosis [Unknown]

NARRATIVE: CASE EVENT DATE: 201602
